FAERS Safety Report 16754066 (Version 1)
Quarter: 2019Q3

REPORT INFORMATION
  Report Type: Report from Study
  Country: CA (occurrence: CA)
  Receive Date: 20190829
  Receipt Date: 20190829
  Transmission Date: 20191005
  Serious: Yes (Other)
  Sender: FDA-Public Use
  Company Number: CA-BRISTOL-MYERS SQUIBB COMPANY-BMS-2017-042589

PATIENT
  Age: 60 Year
  Sex: Female

DRUGS (1)
  1. ABATACEPT [Suspect]
     Active Substance: ABATACEPT
     Indication: RHEUMATOID ARTHRITIS
     Dosage: 750 MG, Q4WK
     Route: 042
     Dates: start: 20120918

REACTIONS (10)
  - Gingivitis [Recovering/Resolving]
  - Productive cough [Unknown]
  - Hernia [Unknown]
  - Blister [Recovered/Resolved]
  - Herpes virus infection [Unknown]
  - Tooth infection [Recovering/Resolving]
  - Ear infection [Recovering/Resolving]
  - Nasopharyngitis [Unknown]
  - Peripheral swelling [Unknown]
  - Injection site pain [Unknown]

NARRATIVE: CASE EVENT DATE: 20170502
